FAERS Safety Report 4765487-3 (Version None)
Quarter: 2005Q3

REPORT INFORMATION
  Report Type: 
  Country: None (occurrence: None)
  Receive Date: 20050908
  Receipt Date: 20050908
  Transmission Date: 20060218
  Serious: Yes (Hospitalization)
  Sender: FDA-Public Use
  Company Number: None

PATIENT
  Age: 87 Year
  Sex: Female
  Weight: 87 kg

DRUGS (1)
  1. COUMADIN [Suspect]

REACTIONS (3)
  - ANAEMIA [None]
  - COAGULOPATHY [None]
  - OVERDOSE [None]
